FAERS Safety Report 5621104-1 (Version None)
Quarter: 2008Q1

REPORT INFORMATION
  Report Type: 
  Country: None (occurrence: None)
  Receive Date: 20080114
  Receipt Date: 20070118
  Transmission Date: 20080703
  Serious: Yes (Other)
  Sender: FDA-Public Use
  Company Number: A03200700526

PATIENT
  Sex: Male

DRUGS (1)
  1. PLAVIX [Suspect]
     Dosage: ORAL
     Route: 048

REACTIONS (1)
  - CARDIAC FAILURE CONGESTIVE [None]
